FAERS Safety Report 14541294 (Version 1)
Quarter: 2018Q1

REPORT INFORMATION
  Report Type: Spontaneous
  Country: IT (occurrence: IT)
  Receive Date: 20180216
  Receipt Date: 20180216
  Transmission Date: 20180509
  Serious: Yes (Hospitalization)
  Sender: FDA-Public Use
  Company Number: IT-OTSUKA-DJ20084625

PATIENT

DRUGS (2)
  1. OPC-14597 [Suspect]
     Active Substance: CILOSTAZOL
     Indication: PSYCHOTIC DISORDER
     Route: 030
     Dates: start: 20081021, end: 20081021
  2. ABILIFY [Suspect]
     Active Substance: ARIPIPRAZOLE
     Indication: PSYCHOTIC DISORDER
     Route: 048
     Dates: start: 20081022, end: 20081028

REACTIONS (2)
  - Urticaria [Recovering/Resolving]
  - Periorbital oedema [Recovering/Resolving]

NARRATIVE: CASE EVENT DATE: 20081028
